FAERS Safety Report 5741338-5 (Version None)
Quarter: 2008Q2

REPORT INFORMATION
  Report Type: 
  Country: None (occurrence: None)
  Receive Date: 20080514
  Receipt Date: 20080428
  Transmission Date: 20081010
  Serious: Yes (Hospitalization)
  Sender: FDA-Public Use
  Company Number: 8032401

PATIENT
  Age: 68 Year
  Sex: Female

DRUGS (5)
  1. KEPPRA [Suspect]
     Dosage: 5000 MG ONCE PO
     Route: 048
     Dates: start: 20080428
  2. BISOPROLOL FUMARATE [Suspect]
     Dosage: 125 MG ONCE PO
     Route: 048
     Dates: start: 20080428
  3. ENALAPRIL MALEATE [Suspect]
     Dosage: 50 MG ONCE PO
     Route: 048
     Dates: start: 20080428
  4. LAMOTRIGINE [Suspect]
     Dosage: 250 MG ONCE PO
     Route: 048
     Dates: start: 20080428
  5. MAGNESIUM VERLA /00648601/ [Suspect]
     Dosage: 5 DF ONCE PO
     Route: 048
     Dates: start: 20080428

REACTIONS (3)
  - DISORIENTATION [None]
  - INCORRECT DOSE ADMINISTERED [None]
  - SOMNOLENCE [None]
